FAERS Safety Report 9193304 (Version 1)
Quarter: 2013Q1

REPORT INFORMATION
  Report Type: Spontaneous
  Country: US (occurrence: None)
  Receive Date: 20120703
  Receipt Date: 20120703
  Transmission Date: 20140127
  Serious: Yes (Other)
  Sender: FDA-Public Use
  Company Number: PHEH2012US010046

PATIENT
  Age: 56 Year
  Sex: Female

DRUGS (1)
  1. GILENYA(FTY)CAPSULE,0.5MG [Suspect]
     Indication: MULTIPLE SCLEROSIS
     Route: 048
     Dates: start: 20111229

REACTIONS (1)
  - Upper respiratory tract infection [None]
